FAERS Safety Report 4421073-6 (Version None)
Quarter: 2004Q3

REPORT INFORMATION
  Report Type: 
  Country: None (occurrence: None)
  Receive Date: 20040803
  Receipt Date: 20040721
  Transmission Date: 20050211
  Serious: Yes (Death, Hospitalization)
  Sender: FDA-Public Use
  Company Number: 2003126127

PATIENT
  Age: 51 Year
  Sex: Female

DRUGS (4)
  1. VFEND [Suspect]
     Indication: ASPERGILLOSIS
     Dates: start: 20030801
  2. CASPOFUNGIN ACETATE (CASPOFUNGIN ACETATE) [Concomitant]
  3. IMMUNOSUPPRESSIVE AGENTS (IMMUNOSUPPRESSIVE AGENTS ) [Concomitant]
  4. CORTICOSTEROIDS (CORTICOSTEROIDS ) [Concomitant]

REACTIONS (9)
  - CEREBRAL DISORDER [None]
  - FUNGUS SPUTUM TEST POSITIVE [None]
  - IMMUNOSUPPRESSION [None]
  - LABORATORY TEST ABNORMAL [None]
  - LIVER DISORDER [None]
  - LUNG DISORDER [None]
  - MUCORMYCOSIS [None]
  - NERVOUS SYSTEM DISORDER [None]
  - PYREXIA [None]
